FAERS Safety Report 4384589-7 (Version None)
Quarter: 2004Q2

REPORT INFORMATION
  Report Type: 
  Country: None (occurrence: None)
  Receive Date: 20040616
  Receipt Date: 20040311
  Transmission Date: 20050107
  Serious: Yes (Other)
  Sender: FDA-Public Use
  Company Number: ENDC20040015

PATIENT
  Age: 28 Year
  Sex: Male

DRUGS (1)
  1. ENDOCET [Suspect]
     Indication: BACK PAIN
     Dosage: 1-4 TABS PRN PO
     Route: 048
     Dates: start: 20040101

REACTIONS (2)
  - DRUG ABUSER [None]
  - DRUG DEPENDENCE [None]
